FAERS Safety Report 4447211-7 (Version None)
Quarter: 2004Q3

REPORT INFORMATION
  Report Type: 
  Country: None (occurrence: None)
  Receive Date: 20040908
  Receipt Date: 20040908
  Transmission Date: 20050211
  Serious: Yes (Death)
  Sender: FDA-Public Use
  Company Number: None

PATIENT
  Age: 17 Year
  Sex: Female

DRUGS (1)
  1. ORTHO EVRA [Suspect]
     Indication: CONTRACEPTION
     Dates: start: 20040102, end: 20040805

REACTIONS (3)
  - CEREBRAL VENOUS THROMBOSIS [None]
  - HEADACHE [None]
  - MENTAL STATUS CHANGES [None]
